FAERS Safety Report 7200514-5 (Version None)
Quarter: 2010Q4

REPORT INFORMATION
  Report Type: 
  Country: None (occurrence: None)
  Receive Date: 20101215
  Receipt Date: 20101209
  Transmission Date: 20110411
  Serious: Yes (Death, Other)
  Sender: FDA-Public Use
  Company Number: 2010US003920

PATIENT
  Age: 57 Year
  Sex: Female
  Weight: 65 kg

DRUGS (2)
  1. AMBISOME [Suspect]
     Indication: PERITONITIS
     Dosage: 200 MG, UID/QD OVER 2 HOURS, IV NOS
     Route: 042
     Dates: start: 20100827, end: 20100901
  2. VANCOMYCIN [Concomitant]

REACTIONS (5)
  - CARDIAC ARREST [None]
  - HYPERKALAEMIA [None]
  - MULTI-ORGAN FAILURE [None]
  - PULMONARY EMBOLISM [None]
  - WRONG TECHNIQUE IN DRUG USAGE PROCESS [None]
